FAERS Safety Report 8905134 (Version 1)
Quarter: 2012Q4

REPORT INFORMATION
  Report Type: 
  Country: GB (occurrence: GB)
  Receive Date: 20121113
  Receipt Date: 20121113
  Transmission Date: 20130627
  Serious: Yes (Other)
  Sender: FDA-Public Use
  Company Number: GB-009507513-1211GBR004575

PATIENT
  Age: 18 Year
  Sex: Female
  Weight: 90.5 kg

DRUGS (3)
  1. IMPLANON [Suspect]
     Dosage: UNK
     Dates: start: 201103
  2. ANTIMICROBIAL (UNSPECIFIED) [Concomitant]
     Route: 042
  3. GASTROINTESTINAL PREPARATIONS (UNSPECIFIED) [Concomitant]
     Route: 042

REACTIONS (2)
  - Device failure [Unknown]
  - Pregnancy with implant contraceptive [Unknown]
